FAERS Safety Report 6770209-0 (Version None)
Quarter: 2010Q2

REPORT INFORMATION
  Report Type: 
  Country: None (occurrence: None)
  Receive Date: 20100615
  Receipt Date: 20100610
  Transmission Date: 20101027
  Serious: Yes (Death)
  Sender: FDA-Public Use
  Company Number: FR-CELGENEUS-056-21880-10061236

PATIENT
  Sex: Female

DRUGS (3)
  1. REVLIMID [Suspect]
     Route: 048
     Dates: start: 20100507
  2. DAUNORUBICIN HCL [Suspect]
     Route: 065
     Dates: start: 20100507
  3. CYTARABINE [Suspect]
     Route: 065
     Dates: start: 20100507

REACTIONS (1)
  - DEATH [None]
